FAERS Safety Report 13945389 (Version 1)
Quarter: 2017Q3

REPORT INFORMATION
  Report Type: Spontaneous
  Country: CZ (occurrence: CZ)
  Receive Date: 20170907
  Receipt Date: 20170907
  Transmission Date: 20171128
  Serious: Yes (Hospitalization)
  Sender: FDA-Public Use
  Company Number: CZ-B.I. PHARMACEUTICALS,INC./RIDGEFIELD-2017-BI-048659

PATIENT
  Age: 70 Year
  Sex: Female

DRUGS (1)
  1. PRADAXA [Suspect]
     Active Substance: DABIGATRAN ETEXILATE MESYLATE
     Indication: ARRHYTHMIA PROPHYLAXIS
     Route: 048

REACTIONS (6)
  - Facial paralysis [Not Recovered/Not Resolved]
  - Activated partial thromboplastin time prolonged [Recovered/Resolved]
  - Hemiparesis [Not Recovered/Not Resolved]
  - Dysarthria [Not Recovered/Not Resolved]
  - Thrombin time prolonged [Recovered/Resolved]
  - Hypoaesthesia [Not Recovered/Not Resolved]
